FAERS Safety Report 19970439 (Version 1)
Quarter: 2021Q4

REPORT INFORMATION
  Report Type: Spontaneous
  Country: CN (occurrence: CN)
  Receive Date: 20211020
  Receipt Date: 20211020
  Transmission Date: 20220303
  Serious: Yes (Life-Threatening, Hospitalization)
  Sender: FDA-Public Use
  Company Number: CN-ROCHE-2939031

PATIENT
  Age: 67 Year
  Sex: Male

DRUGS (16)
  1. ROCEPHIN [Suspect]
     Active Substance: CEFTRIAXONE SODIUM
     Indication: Infection
     Route: 065
     Dates: start: 20210619, end: 20210626
  2. ROCEPHIN [Suspect]
     Active Substance: CEFTRIAXONE SODIUM
     Route: 065
     Dates: start: 20210702
  3. TECENTRIQ [Suspect]
     Active Substance: ATEZOLIZUMAB
     Indication: Small cell lung cancer
     Route: 041
     Dates: start: 20201126, end: 20210317
  4. MYCOPHENOLATE MOFETIL [Concomitant]
     Active Substance: MYCOPHENOLATE MOFETIL
     Dates: start: 20210707
  5. ETOPOSIDE [Concomitant]
     Active Substance: ETOPOSIDE
     Indication: Small cell lung cancer
     Dosage: DAY1-10
     Dates: start: 20201126
  6. CISPLATIN [Concomitant]
     Active Substance: CISPLATIN
     Indication: Small cell lung cancer
     Dosage: DAY 1-2
     Dates: start: 20201126
  7. METHYLPREDNISOLONE SODIUM SUCCINATE [Concomitant]
     Active Substance: METHYLPREDNISOLONE SODIUM SUCCINATE
     Dates: start: 20210619
  8. METHYLPREDNISOLONE SODIUM SUCCINATE [Concomitant]
     Active Substance: METHYLPREDNISOLONE SODIUM SUCCINATE
     Dates: start: 20210626
  9. METHYLPREDNISOLONE SODIUM SUCCINATE [Concomitant]
     Active Substance: METHYLPREDNISOLONE SODIUM SUCCINATE
     Dates: start: 20210629
  10. METHYLPREDNISOLONE SODIUM SUCCINATE [Concomitant]
     Active Substance: METHYLPREDNISOLONE SODIUM SUCCINATE
     Dates: start: 20210705
  11. METHYLPREDNISOLONE SODIUM SUCCINATE [Concomitant]
     Active Substance: METHYLPREDNISOLONE SODIUM SUCCINATE
     Dates: start: 20210707
  12. VORICONAZOLE [Concomitant]
     Active Substance: VORICONAZOLE
     Dates: start: 20210707, end: 20210710
  13. LINEZOLID [Concomitant]
     Active Substance: LINEZOLID
     Dates: start: 20210707
  14. MEROPENEM [Concomitant]
     Active Substance: MEROPENEM
     Dates: start: 20210707, end: 20210710
  15. PIPERACILLIN AND TAZOBACTAM [Concomitant]
     Active Substance: PIPERACILLIN SODIUM\TAZOBACTAM SODIUM
     Dates: start: 20210707, end: 20210710
  16. DYPHYLLINE [Concomitant]
     Active Substance: DYPHYLLINE

REACTIONS (4)
  - Infection [Recovering/Resolving]
  - Immune-mediated lung disease [Unknown]
  - Chest discomfort [Recovering/Resolving]
  - Dyspnoea [Recovering/Resolving]

NARRATIVE: CASE EVENT DATE: 20210619
